FAERS Safety Report 16561750 (Version 2)
Quarter: 2019Q3

REPORT INFORMATION
  Report Type: Spontaneous
  Country: US (occurrence: US)
  Receive Date: 20190711
  Receipt Date: 20190717
  Transmission Date: 20191004
  Serious: Yes (Other)
  Sender: FDA-Public Use
  Company Number: US-PFIZER INC-2019291325

PATIENT
  Age: 58 Year
  Sex: Male

DRUGS (2)
  1. ETOPOSIDE. [Concomitant]
     Active Substance: ETOPOSIDE
     Indication: NEUROENDOCRINE CARCINOMA OF THE SKIN
     Dosage: UNK
     Dates: start: 2017
  2. CARBOPLATIN. [Suspect]
     Active Substance: CARBOPLATIN
     Indication: NEUROENDOCRINE CARCINOMA OF THE SKIN
     Dosage: UNK
     Dates: start: 2017

REACTIONS (1)
  - Toxic neuropathy [Not Recovered/Not Resolved]
